FAERS Safety Report 15999655 (Version 2)
Quarter: 2019Q1

REPORT INFORMATION
  Report Type: Report from Study
  Country: US (occurrence: US)
  Receive Date: 20190225
  Receipt Date: 20190318
  Transmission Date: 20190418
  Serious: Yes (Other)
  Sender: FDA-Public Use
  Company Number: US-ASTELLAS-2019US005956

PATIENT
  Age: 50 Year
  Sex: Male

DRUGS (2)
  1. MIRABEGRON [Suspect]
     Active Substance: MIRABEGRON
     Indication: BLADDER DISORDER
     Route: 048
     Dates: start: 20190111, end: 20190121
  2. OXYBUTYNIN. [Concomitant]
     Active Substance: OXYBUTYNIN CHLORIDE
     Indication: PRODUCT USED FOR UNKNOWN INDICATION
     Dosage: UNK UNK, UNKNOWN FREQ.
     Route: 065

REACTIONS (14)
  - Ill-defined disorder [Unknown]
  - Pain [Unknown]
  - Weight decreased [Unknown]
  - Diabetes mellitus [Unknown]
  - Pollakiuria [Unknown]
  - Toothache [Unknown]
  - Eye disorder [Unknown]
  - Malaise [Unknown]
  - Hair colour changes [Unknown]
  - Blood pressure abnormal [Unknown]
  - Urinary incontinence [Unknown]
  - Insomnia [Unknown]
  - Burning sensation [Unknown]
  - Swollen tongue [Unknown]

NARRATIVE: CASE EVENT DATE: 201901
